FAERS Safety Report 4301726-0 (Version None)
Quarter: 2004Q1

REPORT INFORMATION
  Report Type: 
  Country: None (occurrence: None)
  Receive Date: 20040219
  Receipt Date: 20040213
  Transmission Date: 20041129
  Serious: Yes (Hospitalization, Disabling)
  Sender: FDA-Public Use
  Company Number: HQ2333615MAY2002

PATIENT
  Age: 11 Year
  Sex: Female

DRUGS (6)
  1. DIMETAPP [Suspect]
     Indication: HYPERSENSITIVITY
     Dosage: ORAL
     Route: 048
  2. DIMETAPP [Suspect]
     Indication: INFLUENZA
     Dosage: ORAL
     Route: 048
  3. DIMETAPP [Suspect]
     Indication: NASOPHARYNGITIS
     Dosage: ORAL
     Route: 048
  4. ALKA-SELTZER PLUS (ACETYLSALICYLIC ACID/CHLORPHENAMINE MALEATE/PHENYLP [Suspect]
     Indication: HYPERSENSITIVITY
     Dosage: ORAL
     Route: 048
  5. ALKA-SELTZER PLUS (ACETYLSALICYLIC ACID/CHLORPHENAMINE MALEATE/PHENYLP [Suspect]
     Indication: INFLUENZA
     Dosage: ORAL
     Route: 048
  6. ALKA-SELTZER PLUS (ACETYLSALICYLIC ACID/CHLORPHENAMINE MALEATE/PHENYLP [Suspect]
     Indication: NASOPHARYNGITIS
     Dosage: ORAL
     Route: 048

REACTIONS (12)
  - CEREBRAL HAEMATOMA [None]
  - CEREBRAL INFARCTION [None]
  - COMA [None]
  - CONVULSION [None]
  - FALL [None]
  - HEAD INJURY [None]
  - HEMIPARESIS [None]
  - HYPERREFLEXIA [None]
  - INTRACRANIAL PRESSURE INCREASED [None]
  - INTRAVENTRICULAR HAEMORRHAGE [None]
  - LOSS OF CONSCIOUSNESS [None]
  - RUPTURED CEREBRAL ANEURYSM [None]
